FAERS Safety Report 15402689 (Version 1)
Quarter: 2018Q3

REPORT INFORMATION
  Report Type: Spontaneous
  Country: US (occurrence: US)
  Receive Date: 20180917
  Receipt Date: 20180917
  Transmission Date: 20181010
  Serious: Yes (Other)
  Sender: FDA-Public Use
  Company Number: None

PATIENT
  Age: 65 Year
  Sex: Female
  Weight: 75.6 kg

DRUGS (9)
  1. MANGANESE [Concomitant]
     Active Substance: MANGANESE\MANGANESE CHLORIDE
  2. EZETIMIBE. [Concomitant]
     Active Substance: EZETIMIBE
  3. CETRIZXINE HYDROCHLORIDE [Concomitant]
  4. VITAMIN D [Concomitant]
     Active Substance: CHOLECALCIFEROL
  5. OMNIPRED [Suspect]
     Active Substance: PREDNISOLONE ACETATE
     Indication: POST PROCEDURAL INFLAMMATION
     Route: 047
     Dates: start: 20180714, end: 20180828
  6. LOSARTAN. [Concomitant]
     Active Substance: LOSARTAN
  7. CALCIUM CARBONATE. [Concomitant]
     Active Substance: CALCIUM CARBONATE
  8. GLUOSAMINE CHONDROITIN [Concomitant]
  9. VITAMIN C [Concomitant]
     Active Substance: ASCORBIC ACID

REACTIONS (10)
  - Depressed mood [None]
  - Mood swings [None]
  - Irritability [None]
  - Insomnia [None]
  - Eye inflammation [None]
  - Anxiety [None]
  - Mania [None]
  - Rebound effect [None]
  - Headache [None]
  - Fatigue [None]

NARRATIVE: CASE EVENT DATE: 20180819
